FAERS Safety Report 25541620 (Version 2)
Quarter: 2025Q3

REPORT INFORMATION
  Report Type: Spontaneous
  Country: CA (occurrence: CA)
  Receive Date: 20250711
  Receipt Date: 20250718
  Transmission Date: 20251020
  Serious: Yes (Life-Threatening, Hospitalization)
  Sender: ACCORD
  Company Number: CA-MLMSERVICE-20250625-PI554225-00121-1

PATIENT
  Age: 80 Year
  Sex: Male

DRUGS (5)
  1. DILTIAZEM [Interacting]
     Active Substance: DILTIAZEM
     Indication: Atrial fibrillation
     Dosage: WHICH HE HAD BEEN STABLE ON FOR OVER 6 YEARS
  2. ENZALUTAMIDE [Interacting]
     Active Substance: ENZALUTAMIDE
     Indication: Prostate cancer metastatic
  3. DABIGATRAN [Concomitant]
     Active Substance: DABIGATRAN
     Indication: Atrial fibrillation
     Dosage: WHICH HE HAD BEEN STABLE ON FOR OVER 6 YEARS
  4. ESCITALOPRAM [Concomitant]
     Active Substance: ESCITALOPRAM OXALATE
     Indication: Atrial fibrillation
  5. FUROSEMIDE [Concomitant]
     Active Substance: FUROSEMIDE
     Indication: Atrial fibrillation
     Dosage: WHICH HE HAD BEEN STABLE ON FOR OVER 6 YEARS

REACTIONS (3)
  - Drug interaction [Unknown]
  - Cardiac failure [Recovered/Resolved]
  - Arrhythmia induced cardiomyopathy [Recovered/Resolved]
